FAERS Safety Report 5921039-0 (Version None)
Quarter: 2008Q4

REPORT INFORMATION
  Report Type: 
  Country: None (occurrence: None)
  Receive Date: 20081016
  Receipt Date: 20081006
  Transmission Date: 20090506
  Serious: Yes (Life-Threatening, Hospitalization)
  Sender: FDA-Public Use
  Company Number: DE-PFIZER INC-2008069911

PATIENT
  Sex: Female

DRUGS (3)
  1. SOBELIN [Suspect]
     Indication: SINUS DISORDER
     Route: 048
     Dates: start: 20061012
  2. SOBELIN [Suspect]
     Indication: INFLUENZA
  3. SOBELIN [Suspect]
     Indication: NASOPHARYNGITIS

REACTIONS (2)
  - DEEP VEIN THROMBOSIS [None]
  - PSEUDOMEMBRANOUS COLITIS [None]
